FAERS Safety Report 24356827 (Version 2)
Quarter: 2024Q4

REPORT INFORMATION
  Report Type: Report from Study
  Country: CA (occurrence: CA)
  Receive Date: 20240924
  Receipt Date: 20241223
  Transmission Date: 20250115
  Serious: Yes (Other)
  Sender: REGENERON
  Company Number: CA-BAYER-2024A133719

PATIENT
  Sex: Female

DRUGS (1)
  1. EYLEA [Suspect]
     Active Substance: AFLIBERCEPT
     Indication: Diabetic retinal oedema
     Dosage: UNK, SOLUTION FOR INJECTION, 40MG/ML
     Dates: start: 20230519, end: 202408

REACTIONS (5)
  - Eye disorder [Recovered/Resolved]
  - Visual impairment [Recovered/Resolved]
  - Lens disorder [Unknown]
  - Injection site pain [Not Recovered/Not Resolved]
  - Eye pain [Recovered/Resolved]
